FAERS Safety Report 13572581 (Version 2)
Quarter: 2017Q2

REPORT INFORMATION
  Report Type: Spontaneous
  Country: US (occurrence: US)
  Receive Date: 20170523
  Receipt Date: 20170608
  Transmission Date: 20170830
  Serious: Yes (Hospitalization)
  Sender: FDA-Public Use
  Company Number: US-JNJFOC-20170427976

PATIENT
  Age: 69 Year
  Sex: Male

DRUGS (9)
  1. CEFALEXIN [Concomitant]
     Active Substance: CEPHALEXIN
  2. GLIMEPIRIDE. [Concomitant]
     Active Substance: GLIMEPIRIDE
  3. OMEGA 3 [Concomitant]
     Active Substance: OMEGA-3 FATTY ACIDS
  4. FENOFIBRATE. [Concomitant]
     Active Substance: FENOFIBRATE
  5. IMBRUVICA [Suspect]
     Active Substance: IBRUTINIB
     Indication: MANTLE CELL LYMPHOMA
     Route: 048
     Dates: start: 20170301, end: 20170410
  6. METFORMIN [Concomitant]
     Active Substance: METFORMIN HYDROCHLORIDE
  7. SPIRIVA [Concomitant]
     Active Substance: TIOTROPIUM BROMIDE MONOHYDRATE
  8. TRAJENTA [Concomitant]
     Active Substance: LINAGLIPTIN
     Route: 048
  9. OMEPRAZOLE. [Concomitant]
     Active Substance: OMEPRAZOLE

REACTIONS (11)
  - Pyrexia [Recovered/Resolved]
  - Malaise [Unknown]
  - Chills [Unknown]
  - Off label use [Recovered/Resolved]
  - Cellulitis staphylococcal [Recovered/Resolved]
  - White blood cell count decreased [Unknown]
  - Nausea [Unknown]
  - Haemoglobin decreased [Unknown]
  - Platelet count decreased [Unknown]
  - Incorrect dose administered [Recovered/Resolved]
  - Red blood cell count decreased [Unknown]

NARRATIVE: CASE EVENT DATE: 20170301
